FAERS Safety Report 8988972 (Version 1)
Quarter: 2012Q4

REPORT INFORMATION
  Report Type: Spontaneous
  Country: US (occurrence: None)
  Receive Date: 20121224
  Receipt Date: 20121224
  Transmission Date: 20130627
  Serious: Yes (Hospitalization)
  Sender: FDA-Public Use
  Company Number: None

PATIENT
  Sex: Female
  Weight: 12.9 kg

DRUGS (5)
  1. CYTARABINE [Suspect]
  2. DEXAMETHASONE [Suspect]
  3. METHOTREXATE [Suspect]
  4. PEG-L ASPARAGINASE [Suspect]
  5. VINCRISTINE SULFATE [Suspect]

REACTIONS (14)
  - Culture urine positive [None]
  - Candida sepsis [None]
  - Abdominal pain [None]
  - Upper respiratory tract infection [None]
  - Respiratory distress [None]
  - Blood culture positive [None]
  - Escherichia sepsis [None]
  - Rhinovirus infection [None]
  - Staphylococcal infection [None]
  - Respiratory failure [None]
  - Cerebral haemorrhage [None]
  - Hepatomegaly [None]
  - Pancytopenia [None]
  - Renal failure [None]
